FAERS Safety Report 5241080-3 (Version None)
Quarter: 2007Q1

REPORT INFORMATION
  Report Type: 
  Country: None (occurrence: None)
  Receive Date: 20070214
  Receipt Date: 20070214
  Transmission Date: 20070707
  Serious: Yes (Hospitalization)
  Sender: FDA-Public Use
  Company Number: None

PATIENT
  Age: 66 Year
  Sex: Male

DRUGS (12)
  1. WARFARIN SODIUM [Suspect]
     Indication: THROMBOSIS PROPHYLAXIS
     Dosage: 2 MG PO QOD
     Dates: start: 20060911, end: 20061013
  2. ASPIRIN [Suspect]
     Dosage: 81 MG M-W-F
     Dates: start: 20010917, end: 20070213
  3. ACETAMINOPHEN W/ CODEINE TAB [Concomitant]
  4. DIPHENHYDRAMINE HCL [Concomitant]
  5. DOCUSATE NA [Concomitant]
  6. FUROSEMIDE [Concomitant]
  7. ACETAMINOPHEN AND HYDROCODONE BITARTRATE [Concomitant]
  8. METHOCARBAMOL [Concomitant]
  9. METHYLCELLULOSE [Concomitant]
  10. MINOXIDIL [Concomitant]
  11. OMEPRAZOLE [Concomitant]
  12. VERAPAMIL HCL [Concomitant]

REACTIONS (4)
  - HAEMATOCRIT DECREASED [None]
  - INTERNATIONAL NORMALISED RATIO DECREASED [None]
  - KNEE ARTHROPLASTY [None]
  - POST PROCEDURAL HAEMATOMA [None]
